FAERS Safety Report 4991511-9 (Version None)
Quarter: 2006Q2

REPORT INFORMATION
  Report Type: 
  Country: None (occurrence: None)
  Receive Date: 20060502
  Receipt Date: 20060418
  Transmission Date: 20061013
  Serious: Yes (Hospitalization)
  Sender: FDA-Public Use
  Company Number: 2006-00915

PATIENT
  Age: 76 Year
  Sex: Female
  Weight: 65 kg

DRUGS (6)
  1. VELCADE [Suspect]
     Indication: MULTIPLE MYELOMA
     Dosage: SEE IMAGE
     Route: 042
     Dates: start: 20060221, end: 20060406
  2. VELCADE [Suspect]
     Indication: MULTIPLE MYELOMA
     Dosage: SEE IMAGE
     Route: 042
     Dates: start: 20060406
  3. NADOLOL [Concomitant]
  4. PRESTOLE          (HYDROCHLOROTHIAZIDE, TRIAMTERENE) [Concomitant]
  5. VINBURNINE (VINBURNINE) [Concomitant]
  6. RUTIN TAB [Concomitant]

REACTIONS (3)
  - ASTHENIA [None]
  - FALL [None]
  - LUNG DISORDER [None]
